FAERS Safety Report 25340075 (Version 1)
Quarter: 2025Q2

REPORT INFORMATION
  Report Type: Report from Study
  Country: RU (occurrence: RU)
  Receive Date: 20250521
  Receipt Date: 20250521
  Transmission Date: 20250717
  Serious: Yes (Other)
  Sender: NOVARTIS
  Company Number: RU-002147023-NVSC2025RU058468

PATIENT
  Age: 48 Year
  Sex: Female
  Weight: 77.5 kg

DRUGS (4)
  1. FABHALTA [Suspect]
     Active Substance: IPTACOPAN HYDROCHLORIDE
     Indication: Paroxysmal nocturnal haemoglobinuria
     Dosage: 200 MG, BID
     Route: 048
     Dates: start: 20241129
  2. ELTROMBOPAG [Concomitant]
     Active Substance: ELTROMBOPAG
     Indication: Product used for unknown indication
     Dosage: 150 MG, QD
     Route: 065
     Dates: start: 202409
  3. CYCLOSPORINE [Concomitant]
     Active Substance: CYCLOSPORINE
     Indication: Product used for unknown indication
     Dosage: 250 MG, QD
     Route: 065
     Dates: start: 202106
  4. ECULIZUMAB [Concomitant]
     Active Substance: ECULIZUMAB
     Indication: Product used for unknown indication
     Dosage: 900-1200 MG, BIW
     Route: 041
     Dates: start: 20211216, end: 202501

REACTIONS (12)
  - Biliary obstruction [Unknown]
  - Chronic kidney disease [Unknown]
  - Haemoglobinuria [Recovered/Resolved]
  - Breakthrough haemolysis [Recovered/Resolved]
  - Infection [Unknown]
  - Blood lactate dehydrogenase increased [Recovered/Resolved]
  - Haemoglobin decreased [Recovered/Resolved]
  - Blood bilirubin unconjugated increased [Recovered/Resolved]
  - Liver disorder [Unknown]
  - Cardiac disorder [Unknown]
  - Breakthrough haemolysis [Recovered/Resolved]
  - Breakthrough haemolysis [Not Recovered/Not Resolved]

NARRATIVE: CASE EVENT DATE: 20250207
